FAERS Safety Report 10191193 (Version 1)
Quarter: 2014Q2

REPORT INFORMATION
  Report Type: Spontaneous
  Country: GB (occurrence: GB)
  Receive Date: 20140523
  Receipt Date: 20140523
  Transmission Date: 20141212
  Serious: Yes (Other)
  Sender: FDA-Public Use
  Company Number: GB-ACCORD-023807

PATIENT
  Age: 74 Year
  Sex: Male
  Weight: 77 kg

DRUGS (5)
  1. SLO-PHYLLIN [Concomitant]
     Dosage: LONG TERM.
     Route: 048
  2. SALBUTAMOL [Concomitant]
     Dosage: AS REQUIRED. LONG TERM.
     Route: 055
  3. BUDESONIDE/FORMOTEROL FUMARATE [Concomitant]
     Dosage: 400/12. LONG TERM.
     Route: 055
  4. TIOTROPIUM/TIOTROPIUM BROMIDE [Concomitant]
     Dosage: LONG TERM.
     Route: 055
  5. ALLOPURINOL [Suspect]
     Indication: GOUT
     Route: 048
     Dates: start: 20140328, end: 20140421

REACTIONS (2)
  - Hallucination [Recovering/Resolving]
  - Confusional state [Recovering/Resolving]
